FAERS Safety Report 15259046 (Version 1)
Quarter: 2018Q3

REPORT INFORMATION
  Report Type: Spontaneous
  Country: US (occurrence: US)
  Receive Date: 20180718
  Receipt Date: 20180718
  Transmission Date: 20181010
  Serious: Yes (Hospitalization)
  Sender: FDA-Public Use
  Company Number: None

PATIENT
  Age: 79 Year
  Sex: Male
  Weight: 60 kg

DRUGS (1)
  1. ROFLUMILAST. [Suspect]
     Active Substance: ROFLUMILAST
     Route: 048
     Dates: start: 20180418, end: 20180428

REACTIONS (3)
  - Suicide attempt [None]
  - Chronic obstructive pulmonary disease [None]
  - Intentional self-injury [None]

NARRATIVE: CASE EVENT DATE: 20180428
